FAERS Safety Report 6395542-6 (Version None)
Quarter: 2009Q4

REPORT INFORMATION
  Report Type: 
  Country: None (occurrence: None)
  Receive Date: 20091009
  Receipt Date: 20090430
  Transmission Date: 20100525
  Serious: No
  Sender: FDA-Public Use
  Company Number: US-BAYER-200919946NA

PATIENT
  Age: 51 Year
  Sex: Female

DRUGS (12)
  1. BETASERON [Suspect]
     Indication: RELAPSING-REMITTING MULTIPLE SCLEROSIS
     Route: 058
     Dates: start: 20090317
  2. BETASERON [Suspect]
     Route: 058
     Dates: start: 20090401
  3. BETASERON [Suspect]
     Route: 058
     Dates: start: 20090427
  4. ADVIL [Concomitant]
     Indication: PREMEDICATION
     Route: 065
  5. ADVIL [Concomitant]
     Dosage: 600-800MG/DAY
     Dates: start: 20090430
  6. CLONAZEPAM [Concomitant]
  7. LOTREL [Concomitant]
  8. AMBIEN [Concomitant]
  9. EFFEXOR [Concomitant]
  10. REQUIP [Concomitant]
  11. MULTI-VITAMIN [Concomitant]
  12. VITAMIN D3 [Concomitant]

REACTIONS (1)
  - NON-CARDIAC CHEST PAIN [None]
